FAERS Safety Report 10091740 (Version 1)
Quarter: 2014Q2

REPORT INFORMATION
  Report Type: Spontaneous
  Country: US (occurrence: US)
  Receive Date: 20140421
  Receipt Date: 20140421
  Transmission Date: 20141212
  Serious: No
  Sender: FDA-Public Use
  Company Number: US-PURDUE-USA-2004-0014685

PATIENT
  Sex: Female

DRUGS (2)
  1. OXYFAST CONCENTRATE 20 MG/ML [Suspect]
     Indication: CANCER PAIN
     Dosage: UNK MG/ML, UNK
     Route: 048
  2. UNKNOWN [Concomitant]

REACTIONS (2)
  - Throat irritation [Unknown]
  - Stomatitis [Unknown]
